FAERS Safety Report 7999835-8 (Version None)
Quarter: 2011Q4

REPORT INFORMATION
  Report Type: 
  Country: None (occurrence: None)
  Receive Date: 20111222
  Receipt Date: 20111214
  Transmission Date: 20120403
  Serious: No
  Sender: FDA-Public Use
  Company Number: US-BIOGENIDEC-2011BI006870

PATIENT
  Sex: Female

DRUGS (1)
  1. TYSABRI [Suspect]
     Indication: MULTIPLE SCLEROSIS
     Route: 042
     Dates: start: 20100608, end: 20110701

REACTIONS (5)
  - SINUS DISORDER [None]
  - FATIGUE [None]
  - BACTERIAL INFECTION [None]
  - SINUSITIS [None]
  - FUNGAL INFECTION [None]
